FAERS Safety Report 8509813 (Version 3)
Quarter: 2012Q4

REPORT INFORMATION
  Report Type: 
  Country: US (occurrence: US)
  Receive Date: 20120413
  Receipt Date: 20121003
  Transmission Date: 20130627
  Serious: Yes (Hospitalization)
  Sender: FDA-Public Use
  Company Number: PHEH2012US007348

PATIENT
  Age: 16 Year
  Sex: Male
  Weight: 72 kg

DRUGS (21)
  1. GLEEVEC [Suspect]
     Dosage: 400 mg, BID
     Route: 048
     Dates: start: 20120210
  2. GLEEVEC [Suspect]
     Dosage: 400 mg, UNK
     Route: 048
  3. GLEEVEC [Suspect]
     Dosage: 300 mg, twice a day
     Route: 048
  4. AMBIEN [Concomitant]
     Dosage: 05 mg, UNK
     Route: 048
  5. DIFLUCAN [Concomitant]
     Dosage: 100 mg, UNK
  6. MARINOL [Concomitant]
     Dosage: 05 mg, UNK
     Route: 048
  7. SALINEX NASAL [Concomitant]
  8. ZOFRAN [Concomitant]
     Dosage: 04 mg, UNK
     Route: 048
  9. OXYCODONE [Concomitant]
     Dosage: 05 mg, UNK
     Route: 048
  10. CELEXA [Concomitant]
     Dosage: 10 mg, UNK
     Route: 048
  11. ZANTAC [Concomitant]
     Route: 048
  12. CALMOSEPTINE [Concomitant]
  13. BACTRIM [Concomitant]
     Dosage: 400 mg, UNK
     Route: 048
  14. MELATONIN [Concomitant]
     Dosage: 03 mg, UNK
     Route: 048
  15. LIDOCAINE [Concomitant]
     Dosage: 03 %, UNK
  16. NEUPOGEN [Concomitant]
     Dosage: 480 ug, UNK
     Route: 058
  17. PHOS-NAK [Concomitant]
  18. SODIUM CHLORIDE [Concomitant]
     Dosage: 0.9 %, UNK
  19. CLOTRIMAZOLE [Concomitant]
     Dosage: 2 %, UNK
  20. KYTRIL [Concomitant]
  21. VALTREX [Concomitant]

REACTIONS (14)
  - Viral infection [Unknown]
  - Nausea [Unknown]
  - Vomiting [Unknown]
  - Leukaemia [Unknown]
  - Abscess [Unknown]
  - Furuncle [Unknown]
  - Blood test abnormal [Unknown]
  - Full blood count abnormal [Unknown]
  - Renal impairment [Unknown]
  - Blood creatinine abnormal [Unknown]
  - Eye haemorrhage [Unknown]
  - Headache [Unknown]
  - Diarrhoea [Unknown]
  - Dehydration [Unknown]
